FAERS Safety Report 19379925 (Version 1)
Quarter: 2021Q2

REPORT INFORMATION
  Report Type: Spontaneous
  Country: US (occurrence: US)
  Receive Date: 20210604
  Receipt Date: 20210604
  Transmission Date: 20210717
  Serious: No
  Sender: FDA-Public Use
  Company Number: None

PATIENT
  Age: 72 Year
  Sex: Male

DRUGS (1)
  1. SEMAGLUTIDE (SEMAGLUTIDE 0.5MG/0.375ML INJ,SOLN,PEN,1.5ML) [Suspect]
     Active Substance: SEMAGLUTIDE
     Indication: DIABETES MELLITUS
     Route: 058
     Dates: start: 20201125, end: 20210225

REACTIONS (6)
  - Diarrhoea [None]
  - Abdominal pain [None]
  - Nausea [None]
  - Pancreatitis [None]
  - Vomiting [None]
  - Pancreatic duct dilatation [None]

NARRATIVE: CASE EVENT DATE: 20210225
